FAERS Safety Report 5798826-5 (Version None)
Quarter: 2008Q2

REPORT INFORMATION
  Report Type: 
  Country: None (occurrence: None)
  Receive Date: 20080630
  Receipt Date: 20080307
  Transmission Date: 20081010
  Serious: Yes (Hospitalization)
  Sender: FDA-Public Use
  Company Number: 2008-00290FE

PATIENT
  Age: 36 Year
  Sex: Female

DRUGS (3)
  1. HUMAN MENOPAUSAL GONADOTROPIN [Suspect]
     Indication: INFERTILITY
  2. HUMAN CHORIOANIC GONADOTROPIN()(GONADOTROPIN CHORIONIC) [Suspect]
     Indication: INFERTILITY
  3. MOXALACPAM [Concomitant]

REACTIONS (4)
  - CYSTITIS [None]
  - HYDRONEPHROSIS [None]
  - PERITONITIS LUPUS [None]
  - SYSTEMIC LUPUS ERYTHEMATOSUS [None]
